FAERS Safety Report 26107883 (Version 1)
Quarter: 2025Q4

REPORT INFORMATION
  Report Type: Spontaneous
  Country: US (occurrence: None)
  Receive Date: 20251201
  Receipt Date: 20251201
  Transmission Date: 20260117
  Serious: Yes (Disabling)
  Sender: FDA-CTU
  Company Number: None

PATIENT
  Age: 50 Year
  Sex: Male
  Weight: 92.25 kg

DRUGS (3)
  1. DUPIXENT [Suspect]
     Active Substance: DUPILUMAB
     Indication: Eczema
     Dosage: 1 INJECTION DAILY INTRAMUSCULAR
     Route: 030
     Dates: start: 20250320, end: 20250420
  2. ACCUTANE [Suspect]
     Active Substance: ISOTRETINOIN
  3. SYNTHROID [Concomitant]
     Active Substance: LEVOTHYROXINE SODIUM

REACTIONS (1)
  - Deafness [None]

NARRATIVE: CASE EVENT DATE: 20250420
